FAERS Safety Report 13782726 (Version 2)
Quarter: 2017Q3

REPORT INFORMATION
  Report Type: Spontaneous
  Country: US (occurrence: US)
  Receive Date: 20170724
  Receipt Date: 20170824
  Transmission Date: 20171127
  Serious: No
  Sender: FDA-Public Use
  Company Number: US-009507513-1707USA002754

PATIENT
  Age: 31 Year
  Sex: Female

DRUGS (3)
  1. PROVENTIL [Suspect]
     Active Substance: ALBUTEROL
     Indication: PRODUCT USED FOR UNKNOWN INDICATION
     Dosage: 90 UNK, UNK
     Route: 055
  2. PROVENTIL [Suspect]
     Active Substance: ALBUTEROL
     Dosage: 90 UNK, UNK
     Route: 055
  3. PROVENTIL [Suspect]
     Active Substance: ALBUTEROL
     Dosage: UNK MICROGRAM, UNK
     Route: 055

REACTIONS (9)
  - Heart rate increased [Not Recovered/Not Resolved]
  - Cold sweat [Not Recovered/Not Resolved]
  - Drug dose omission [Unknown]
  - Tremor [Not Recovered/Not Resolved]
  - Hypertension [Not Recovered/Not Resolved]
  - Flushing [Not Recovered/Not Resolved]
  - Product quality issue [Unknown]
  - Nausea [Not Recovered/Not Resolved]
  - Dyspnoea [Not Recovered/Not Resolved]

NARRATIVE: CASE EVENT DATE: 20170714
